FAERS Safety Report 14813745 (Version 1)
Quarter: 2018Q2

REPORT INFORMATION
  Report Type: Spontaneous
  Country: US (occurrence: US)
  Receive Date: 20180426
  Receipt Date: 20180426
  Transmission Date: 20180711
  Serious: No
  Sender: FDA-Public Use
  Company Number: US-PFIZER INC-2018170233

PATIENT
  Age: 45 Year
  Sex: Female

DRUGS (1)
  1. IBRANCE [Suspect]
     Active Substance: PALBOCICLIB
     Indication: BREAST CANCER FEMALE
     Dosage: 125 MG, CYCLIC (1 CAPSULE,DAILY FOR 21 DAYS THEN 7 OFF FOR DAYS)
     Route: 048
     Dates: start: 201803

REACTIONS (2)
  - Alopecia [Unknown]
  - Diarrhoea [Unknown]

NARRATIVE: CASE EVENT DATE: 201804
